FAERS Safety Report 12720691 (Version 5)
Quarter: 2017Q1

REPORT INFORMATION
  Report Type: Spontaneous
  Country: US (occurrence: US)
  Receive Date: 20160907
  Receipt Date: 20170308
  Transmission Date: 20170428
  Serious: Yes (Hospitalization, Other)
  Sender: FDA-Public Use
  Company Number: US-PFIZER INC-2016415393

PATIENT
  Age: 72 Year
  Sex: Male

DRUGS (5)
  1. HYDROCODONE/PARACETAMOL [Concomitant]
     Indication: PAIN
     Dosage: 1 DF, AS NEEDED (HYDROCODONE 10 MG/ PARACETAMOL 325MG TWICE DAILY)
     Dates: start: 20150122
  2. XELJANZ [Suspect]
     Active Substance: TOFACITINIB CITRATE
     Dosage: 5 MG, 4X/DAY
  3. ASPIRIN. [Concomitant]
     Active Substance: ASPIRIN
     Indication: ARRHYTHMIA
     Dosage: 81 MG, 1X/DAY
     Dates: start: 20150122
  4. XELJANZ [Suspect]
     Active Substance: TOFACITINIB CITRATE
     Indication: RHEUMATOID ARTHRITIS
     Dosage: 5 MG, 1X/DAY
     Route: 048
     Dates: start: 20151224
  5. MELOXICAM. [Concomitant]
     Active Substance: MELOXICAM
     Indication: RHEUMATOID ARTHRITIS
     Dosage: 7.5MG ONCE DAILY AS NEEDED
     Dates: start: 20150122

REACTIONS (3)
  - Overdose [Unknown]
  - Pneumonia [Recovered/Resolved]
  - Gastrointestinal haemorrhage [Recovered/Resolved]

NARRATIVE: CASE EVENT DATE: 20160810
